FAERS Safety Report 7903066-7 (Version None)
Quarter: 2011Q4

REPORT INFORMATION
  Report Type: 
  Country: None (occurrence: None)
  Receive Date: 20111107
  Receipt Date: 20111021
  Transmission Date: 20120403
  Serious: Yes (Hospitalization)
  Sender: FDA-Public Use
  Company Number: DSA_47937_2011

PATIENT
  Age: 82 Year
  Sex: Male

DRUGS (9)
  1. ENALAPRIL MALEATE [Suspect]
     Indication: PRODUCT USED FOR UNKNOWN INDICATION
     Dosage: (DF, ONE TIME ORAL)
     Route: 048
  2. TRAMADOL HYDROCHLORIDE AND ACETAMINOPHEN [Concomitant]
  3. TAMSULOSIN HYDROCHLORIDE [Concomitant]
  4. AXITINIB [Suspect]
     Indication: METASTATIC RENAL CELL CARCINOMA
     Dosage: (5 MG BID ORAL)
     Route: 048
     Dates: start: 20100929, end: 20110701
  5. PANTOPRAZOLE [Concomitant]
  6. LEVOTHROID [Concomitant]
  7. FINASTERIDE [Concomitant]
  8. URBASONE /00049601/ [Concomitant]
  9. FORTIMEL [Concomitant]

REACTIONS (3)
  - HYPOTENSION [None]
  - WRONG DRUG ADMINISTERED [None]
  - FALL [None]
